FAERS Safety Report 25304907 (Version 2)
Quarter: 2025Q2

REPORT INFORMATION
  Report Type: Spontaneous
  Country: US (occurrence: US)
  Receive Date: 20250513
  Receipt Date: 20250514
  Transmission Date: 20250717
  Serious: No
  Sender: PFIZER
  Company Number: US-PFIZER INC-PV202500055567

PATIENT
  Age: 56 Year
  Sex: Female
  Weight: 45.36 kg

DRUGS (3)
  1. CORTEF [Suspect]
     Active Substance: HYDROCORTISONE
     Indication: Mast cell activation syndrome
     Dosage: 2.5 MG, 1X/DAY (HALF OF A 5 MG TABLET)
     Route: 048
  2. CORTEF [Suspect]
     Active Substance: HYDROCORTISONE
     Dosage: 2.5 MG, 2X/DAY (HALF TABLET TWICE A DAY)
     Route: 048
     Dates: start: 2025
  3. ZYRTEC [Suspect]
     Active Substance: CETIRIZINE HYDROCHLORIDE
     Dosage: UNK, 1X/DAY
     Dates: start: 202504

REACTIONS (4)
  - Withdrawal syndrome [Unknown]
  - Pain [Unknown]
  - Headache [Unknown]
  - Off label use [Unknown]

NARRATIVE: CASE EVENT DATE: 20250101
